FAERS Safety Report 7226809-7 (Version None)
Quarter: 2011Q1

REPORT INFORMATION
  Report Type: 
  Country: None (occurrence: None)
  Receive Date: 20110114
  Receipt Date: 20110111
  Transmission Date: 20110831
  Serious: Yes (Hospitalization, Other)
  Sender: FDA-Public Use
  Company Number: IT-ROXANE LABORATORIES, INC.-2011-RO-00050RO

PATIENT
  Age: 6 Month
  Sex: Male

DRUGS (2)
  1. PROPRANOLOL [Suspect]
     Indication: HAEMANGIOMA OF LIVER
  2. PROPRANOLOL [Suspect]
     Indication: HAEMANGIOMA OF SKIN

REACTIONS (3)
  - CONVULSION [None]
  - HYPERPHAGIA [None]
  - NEUROGLYCOPENIA [None]
